FAERS Safety Report 9743303 (Version 2)
Quarter: 2013Q4

REPORT INFORMATION
  Report Type: Spontaneous
  Country: US (occurrence: US)
  Receive Date: 20131210
  Receipt Date: 20131210
  Transmission Date: 20140711
  Serious: Yes (Other)
  Sender: FDA-Public Use
  Company Number: US-GILEAD-2009-0025597

PATIENT
  Age: 49 Year
  Sex: Female
  Weight: 106.59 kg

DRUGS (10)
  1. LETAIRIS [Suspect]
     Indication: PULMONARY ARTERIAL HYPERTENSION
     Route: 048
     Dates: start: 20090928, end: 20091027
  2. LASIX [Concomitant]
  3. ALDACTONE [Concomitant]
  4. ATENOLOL [Concomitant]
  5. METHADONE [Concomitant]
  6. BUSPAR [Concomitant]
  7. AMARYL [Concomitant]
  8. OXYCODONE [Concomitant]
  9. PREVACID [Concomitant]
  10. LEVOTHROID [Concomitant]

REACTIONS (3)
  - Angioedema [Recovering/Resolving]
  - Drug hypersensitivity [Recovering/Resolving]
  - Rash [Recovering/Resolving]
